FAERS Safety Report 6796232-8 (Version None)
Quarter: 2010Q2

REPORT INFORMATION
  Report Type: 
  Country: None (occurrence: None)
  Receive Date: 20100625
  Receipt Date: 20100616
  Transmission Date: 20101027
  Serious: Yes (Hospitalization)
  Sender: FDA-Public Use
  Company Number: JP-AMGEN-US243297

PATIENT
  Sex: Female
  Weight: 50 kg

DRUGS (14)
  1. ENBREL [Suspect]
     Indication: RHEUMATOID ARTHRITIS
     Route: 058
     Dates: start: 20050708, end: 20070115
  2. NU-LOTAN [Concomitant]
     Route: 048
     Dates: end: 20070528
  3. RINDERON [Concomitant]
     Route: 048
  4. LOXONIN [Concomitant]
     Route: 048
  5. FAMOTIDINE [Concomitant]
     Route: 048
     Dates: end: 20070402
  6. LIMETHASONE [Concomitant]
     Dosage: UNKNOWN
     Route: 042
  7. CINAL [Concomitant]
     Route: 048
  8. PURSENNID [Concomitant]
     Route: 048
     Dates: end: 20070514
  9. SILECE [Concomitant]
     Route: 048
  10. ALFAROL [Concomitant]
     Dosage: UNKNOWN
     Route: 048
  11. BENZALIN [Concomitant]
     Dosage: UNKNOWN
     Route: 048
  12. FOSAMAX [Concomitant]
     Route: 048
  13. LIPOVAS ^BANYU^ [Concomitant]
     Route: 048
  14. UNSPECIFIED HERBAL PRODUCT [Concomitant]

REACTIONS (2)
  - LIPOGRANULOMA [None]
  - PANNICULITIS [None]
